FAERS Safety Report 5237269-X (Version None)
Quarter: 2007Q1

REPORT INFORMATION
  Report Type: 
  Country: None (occurrence: None)
  Receive Date: 20070213
  Receipt Date: 20070202
  Transmission Date: 20070707
  Serious: Yes (Life-Threatening, Other)
  Sender: FDA-Public Use
  Company Number: US-BRISTOL-MYERS SQUIBB COMPANY-13668025

PATIENT
  Age: 14 Month
  Sex: Female
  Weight: 8 kg

DRUGS (4)
  1. ATAZANAVIR [Suspect]
     Indication: HIV INFECTION
     Route: 048
     Dates: start: 20010307
  2. BACTRIM [Concomitant]
  3. ZERIT [Concomitant]
     Dates: start: 20010307
  4. EPIVIR [Concomitant]
     Dates: start: 20010307

REACTIONS (1)
  - BLOOD ALKALINE PHOSPHATASE INCREASED [None]
